FAERS Safety Report 10076680 (Version 1)
Quarter: 2014Q2

REPORT INFORMATION
  Report Type: Other
  Country: GB (occurrence: GB)
  Receive Date: 20140414
  Receipt Date: 20140414
  Transmission Date: 20141212
  Serious: Yes (Death, Other)
  Sender: FDA-Public Use
  Company Number: GB-TARO PHARMACEUTICALS U.S.A., INC-2014SUN00800

PATIENT
  Age: 39 Year
  Sex: Female
  Weight: 113 kg

DRUGS (2)
  1. WARFARIN [Suspect]
     Indication: PULMONARY EMBOLISM
     Dosage: VARIABLE, BETWEEN 10MG AND 20MG
     Route: 048
     Dates: start: 201306
  2. OMEPRAZOLE [Concomitant]

REACTIONS (1)
  - Weight increased [Not Recovered/Not Resolved]
